FAERS Safety Report 7723083-X (Version None)
Quarter: 2011Q3

REPORT INFORMATION
  Report Type: 
  Country: None (occurrence: None)
  Receive Date: 20110826
  Receipt Date: 20110819
  Transmission Date: 20111222
  Serious: Yes (Life-Threatening)
  Sender: FDA-Public Use
  Company Number: JHP201100408

PATIENT
  Age: 10 Year
  Sex: Female

DRUGS (6)
  1. EPINEPHRINE [Suspect]
  2. HYDROMORPHONE HCL [Suspect]
  3. MORPHINE [Suspect]
  4. MIDAZOLAM HYDROCHLORIDE [Concomitant]
  5. KETALAR [Suspect]
     Indication: INDUCTION OF ANAESTHESIA
  6. DOPAMINE HCL [Suspect]

REACTIONS (1)
  - CARDIAC ARREST [None]
